FAERS Safety Report 5956050-7 (Version None)
Quarter: 2008Q4

REPORT INFORMATION
  Report Type: 
  Country: None (occurrence: None)
  Receive Date: 20081118
  Receipt Date: 20081107
  Transmission Date: 20090506
  Serious: Yes (Hospitalization, Disabling)
  Sender: FDA-Public Use
  Company Number: JP-SP-2008-03222

PATIENT
  Age: 88 Year
  Sex: Male

DRUGS (1)
  1. IMMUCYST [Suspect]
     Indication: BLADDER CANCER
     Route: 043
     Dates: start: 20080922, end: 20080929

REACTIONS (3)
  - BLOOD CREATININE INCREASED [None]
  - PYREXIA [None]
  - RENAL IMPAIRMENT [None]
